FAERS Safety Report 8544856-X (Version None)
Quarter: 2012Q3

REPORT INFORMATION
  Report Type: 
  Country: None (occurrence: None)
  Receive Date: 20120727
  Receipt Date: 20120719
  Transmission Date: 20120928
  Serious: Yes (Hospitalization)
  Sender: FDA-Public Use
  Company Number: US-JNJFOC-20120712529

PATIENT
  Age: 57 Year
  Sex: Female
  Weight: 69.39 kg

DRUGS (13)
  1. IBUPROFEN [Suspect]
     Route: 048
     Dates: start: 20120307
  2. IBUPROFEN [Suspect]
     Route: 048
     Dates: start: 20120701, end: 20120718
  3. CELECOXIB [Suspect]
     Indication: RHEUMATOID ARTHRITIS
     Route: 048
  4. NAPROXEN [Suspect]
     Route: 048
     Dates: start: 20120307
  5. PLACEBO [Suspect]
     Indication: RHEUMATOID ARTHRITIS
     Route: 048
     Dates: start: 20120307
  6. UNKNOWN MEDICATION [Suspect]
     Route: 048
     Dates: start: 20120307
  7. NEXIUM [Concomitant]
     Indication: PROPHYLAXIS
     Route: 048
     Dates: start: 20120307
  8. PLACEBO [Suspect]
     Route: 048
  9. NAPROXEN [Suspect]
     Indication: RHEUMATOID ARTHRITIS
     Route: 048
  10. UNKNOWN MEDICATION [Suspect]
     Indication: OSTEOARTHRITIS
     Route: 048
  11. CELECOXIB [Suspect]
     Route: 048
     Dates: start: 20120307
  12. IBUPROFEN [Suspect]
     Indication: OSTEOARTHRITIS
     Route: 048
  13. IBUPROFEN [Suspect]
     Route: 048

REACTIONS (1)
  - GASTROOESOPHAGEAL REFLUX DISEASE [None]
